FAERS Safety Report 7516958-8 (Version None)
Quarter: 2011Q2

REPORT INFORMATION
  Report Type: 
  Country: None (occurrence: None)
  Receive Date: 20110502
  Receipt Date: 20110201
  Transmission Date: 20111010
  Serious: Yes (Other)
  Sender: FDA-Public Use
  Company Number: AMAG201100017

PATIENT
  Age: 77 Year
  Sex: Female
  Weight: 52.6 kg

DRUGS (11)
  1. SIL-NORBORAL (GLIBENCLAMIDE, METFORMIN) [Concomitant]
  2. ALPHAGAN P EYE DROPS [Concomitant]
  3. NORTRIPTYLINE HCL [Concomitant]
  4. LUMIGAN [Concomitant]
  5. GLIPIZIDE [Concomitant]
  6. PRED FORTE [Concomitant]
  7. FERAHEME [Suspect]
     Indication: IRON DEFICIENCY ANAEMIA
     Dosage: 510 MG, SINGLE, INTRAVENOUS, 510 MG, SINGLE
     Route: 042
     Dates: start: 20110105, end: 20110105
  8. FERAHEME [Suspect]
     Indication: IRON DEFICIENCY ANAEMIA
     Dosage: 510 MG, SINGLE, INTRAVENOUS, 510 MG, SINGLE
     Route: 042
     Dates: start: 20101222, end: 20101222
  9. ADALAT CC [Concomitant]
  10. METFORMIN HCL [Concomitant]
  11. COSOPT [Concomitant]

REACTIONS (9)
  - DYSPNOEA [None]
  - HYPOTENSION [None]
  - HYPERSENSITIVITY [None]
  - PERIORBITAL OEDEMA [None]
  - ASTHENIA [None]
  - UNRESPONSIVE TO STIMULI [None]
  - FLUSHING [None]
  - PULSE PRESSURE DECREASED [None]
  - NAUSEA [None]
